FAERS Safety Report 5100403-6 (Version None)
Quarter: 2006Q3

REPORT INFORMATION
  Report Type: 
  Country: None (occurrence: None)
  Receive Date: 20060731
  Receipt Date: 20060530
  Transmission Date: 20061208
  Serious: No
  Sender: FDA-Public Use
  Company Number: 2006PV014710

PATIENT
  Age: 65 Year
  Sex: Male

DRUGS (5)
  1. BYETTA [Suspect]
     Indication: DIABETES MELLITUS NON-INSULIN-DEPENDENT
     Dosage: SEE IMAGE
     Route: 058
     Dates: start: 20060301, end: 20060401
  2. BYETTA [Suspect]
     Indication: DIABETES MELLITUS NON-INSULIN-DEPENDENT
     Dosage: SEE IMAGE
     Route: 058
     Dates: start: 20060401
  3. METFORMIN HCL [Concomitant]
  4. AVANDIA [Concomitant]
  5. ACTOS /USA/ [Concomitant]

REACTIONS (5)
  - ASTHENIA [None]
  - CONDITION AGGRAVATED [None]
  - HICCUPS [None]
  - NAUSEA [None]
  - WEIGHT DECREASED [None]
